FAERS Safety Report 24254062 (Version 1)
Quarter: 2024Q3

REPORT INFORMATION
  Report Type: Spontaneous
  Country: EG (occurrence: EG)
  Receive Date: 20240827
  Receipt Date: 20240827
  Transmission Date: 20241017
  Serious: Yes (Other)
  Sender: CHEPLAPHARM
  Company Number: EG-ROCHE-10000061469

PATIENT
  Age: 50 Year
  Sex: Female

DRUGS (12)
  1. CAPECITABINE [Suspect]
     Active Substance: CAPECITABINE
     Indication: Breast cancer
     Dosage: 2 WEEKS EVERY 3 WEEKS
     Route: 048
     Dates: start: 20200930, end: 20211017
  2. TRASTUZUMAB [Suspect]
     Active Substance: TRASTUZUMAB
     Indication: Breast cancer
     Route: 042
     Dates: start: 20190324, end: 20190414
  3. TRASTUZUMAB [Suspect]
     Active Substance: TRASTUZUMAB
     Indication: Breast cancer
     Route: 058
     Dates: start: 20190513, end: 20200901
  4. TRASTUZUMAB [Suspect]
     Active Substance: TRASTUZUMAB
     Route: 058
     Dates: start: 20190513, end: 20200901
  5. PACLITAXEL [Suspect]
     Active Substance: PACLITAXEL
     Indication: Breast cancer
     Dosage: DAILY DOSE: 60 MILLIGRAM/M?
     Route: 042
     Dates: start: 20190324, end: 20190908
  6. GEMCITABINE [Suspect]
     Active Substance: GEMCITABINE
     Indication: Breast cancer
     Dosage: DAY1 AND DAY8 EVERY 21 DA
     Route: 042
     Dates: start: 20211110, end: 20221220
  7. LAPATINIB [Suspect]
     Active Substance: LAPATINIB
     Indication: Breast cancer
     Dosage: DAILY DOSE: 1250 MILLIGRAM
     Route: 048
     Dates: start: 20200930, end: 20211017
  8. CARBOPLATIN [Suspect]
     Active Substance: CARBOPLATIN
     Indication: Breast cancer
     Route: 042
     Dates: start: 20211110, end: 20221220
  9. UREA [Concomitant]
     Active Substance: UREA
     Indication: Palmar-plantar erythrodysaesthesia syndrome
  10. CELECOXIB [Concomitant]
     Active Substance: CELECOXIB
     Indication: Toothache
  11. PREGABALIN [Concomitant]
     Active Substance: PREGABALIN
  12. PHENYTOIN [Concomitant]
     Active Substance: PHENYTOIN
     Indication: Seizure
     Dates: start: 20240111

REACTIONS (3)
  - Altered state of consciousness [Unknown]
  - Productive cough [Unknown]
  - Pyrexia [Unknown]

NARRATIVE: CASE EVENT DATE: 20231231
